FAERS Safety Report 24739032 (Version 1)
Quarter: 2024Q4

REPORT INFORMATION
  Report Type: Spontaneous
  Country: US (occurrence: US)
  Receive Date: 20241216
  Receipt Date: 20241216
  Transmission Date: 20250115
  Serious: No
  Sender: ALVOGEN
  Company Number: US-ALVOGEN-2024095019

PATIENT
  Sex: Female

DRUGS (1)
  1. FENTANYL [Suspect]
     Active Substance: FENTANYL
     Indication: Product used for unknown indication
     Dosage: FENTANYL PATCH 75 MICROGRAMS EVERY 48 HOURS?EXPIRATION DATE: UU-DEC-2026

REACTIONS (2)
  - Device malfunction [Unknown]
  - Device adhesion issue [Unknown]
